FAERS Safety Report 5662564-X (Version None)
Quarter: 2008Q1

REPORT INFORMATION
  Report Type: 
  Country: None (occurrence: None)
  Receive Date: 20080222
  Receipt Date: 20070416
  Transmission Date: 20080703
  Serious: Yes (Other)
  Sender: FDA-Public Use
  Company Number: WWISSUE-74

PATIENT
  Sex: Female

DRUGS (1)
  1. CAPTOPRIL [Suspect]
     Dosage: 1/2 TABLET, TWICE, ORAL
     Route: 048
     Dates: start: 20070414, end: 20070416

REACTIONS (1)
  - ANGIOEDEMA [None]
